FAERS Safety Report 9297175 (Version 2)
Quarter: 2013Q3

REPORT INFORMATION
  Report Type: Spontaneous
  Country: JP (occurrence: JP)
  Receive Date: 20130520
  Receipt Date: 20130712
  Transmission Date: 20140515
  Serious: Yes (Other)
  Sender: FDA-Public Use
  Company Number: JP-RANBAXY-2013RR-69180

PATIENT
  Age: 82 Year
  Sex: Female
  Weight: 33 kg

DRUGS (9)
  1. MIDAZOLAM [Suspect]
     Indication: ANAESTHESIA
     Dosage: 1 MG
     Route: 065
  2. MIDAZOLAM [Suspect]
     Indication: ANAESTHESIA
     Dosage: 1 MG
     Route: 065
  3. FENTANYL [Suspect]
     Indication: ANAESTHESIA
     Dosage: 25 ?G
     Route: 065
  4. PROPOFOL [Suspect]
     Indication: ANAESTHESIA
     Dosage: 1.5 MG/KG/H
     Route: 042
  5. BUPIVACAINE [Suspect]
     Indication: ANAESTHESIA
     Dosage: 2 ML
     Route: 065
  6. LIDOCAINE [Suspect]
     Indication: ANAESTHESIA
     Dosage: 10 ML
     Route: 065
  7. ROPIVACAINE [Suspect]
     Indication: ANAESTHESIA
     Dosage: 15 ML
     Route: 065
  8. AMPICILLIN [Concomitant]
     Indication: PNEUMONIA
     Dosage: UNK
     Route: 065
  9. SULBACTAM [Concomitant]
     Indication: PNEUMONIA
     Dosage: UNK
     Route: 065

REACTIONS (5)
  - Respiratory disorder [Recovered/Resolved]
  - Hypercapnia [Recovering/Resolving]
  - Altered state of consciousness [Recovered/Resolved]
  - Electrocardiogram ST segment elevation [Recovered/Resolved]
  - Hypotension [Recovering/Resolving]
